FAERS Safety Report 6390532-1 (Version None)
Quarter: 2009Q4

REPORT INFORMATION
  Report Type: 
  Country: None (occurrence: None)
  Receive Date: 20091003
  Receipt Date: 20090918
  Transmission Date: 20100525
  Serious: Yes (Hospitalization)
  Sender: FDA-Public Use
  Company Number: 1000009124

PATIENT
  Age: 80 Year
  Sex: Male

DRUGS (4)
  1. ESCITALOPRAM [Suspect]
     Dosage: 10 MG (10 MG,1 IN 1 D),ORAL
     Route: 048
     Dates: end: 20090418
  2. PARKINANE [Concomitant]
  3. SINEMET [Concomitant]
  4. STILNOX [Concomitant]

REACTIONS (9)
  - CONVULSION [None]
  - CYANOSIS [None]
  - DYSARTHRIA [None]
  - HYPERTONIA [None]
  - HYPONATRAEMIA [None]
  - INAPPROPRIATE ANTIDIURETIC HORMONE SECRETION [None]
  - LOSS OF CONSCIOUSNESS [None]
  - MALAISE [None]
  - POSTICTAL STATE [None]
